FAERS Safety Report 15560776 (Version 3)
Quarter: 2020Q3

REPORT INFORMATION
  Report Type: Spontaneous
  Country: US (occurrence: US)
  Receive Date: 20181029
  Receipt Date: 20200813
  Transmission Date: 20201102
  Serious: No
  Sender: FDA-Public Use
  Company Number: US-PFIZER INC-2018438265

PATIENT
  Age: 74 Year
  Sex: Female

DRUGS (3)
  1. XELJANZ XR [Suspect]
     Active Substance: TOFACITINIB CITRATE
     Dosage: 11 MG, UNK
  2. XELJANZ XR [Suspect]
     Active Substance: TOFACITINIB CITRATE
     Dosage: UNK (XELJANZ XR 11 MG/ I TAKE THEM EVERY 3 OR 4 DAYS)
  3. XELJANZ XR [Suspect]
     Active Substance: TOFACITINIB CITRATE
     Dosage: UNK (XELJANZ XR 11 MG/ I^VE BEEN TAKING MY XELJANZ EVERY THREE DAYS)

REACTIONS (2)
  - Intentional product misuse [Unknown]
  - Gait disturbance [Unknown]
